FAERS Safety Report 4578576-3 (Version None)
Quarter: 2005Q1

REPORT INFORMATION
  Report Type: 
  Country: None (occurrence: None)
  Receive Date: 20050211
  Receipt Date: 20050118
  Transmission Date: 20050727
  Serious: Yes (Other)
  Sender: FDA-Public Use
  Company Number: PHNU2005DE00592

PATIENT
  Sex: Male
  Weight: 91 kg

DRUGS (2)
  1. DIOVAN [Suspect]
     Indication: HYPERTENSION
     Dosage: UNK, UNK
     Route: 048
     Dates: start: 20031001, end: 20050110
  2. DILATREND [Suspect]
     Indication: HYPERTENSION
     Dosage: UNK, UNK
     Route: 048
     Dates: start: 20031001, end: 20050110

REACTIONS (3)
  - MACULAR DEGENERATION [None]
  - RETINAL OEDEMA [None]
  - VISUAL DISTURBANCE [None]
